FAERS Safety Report 19029493 (Version 3)
Quarter: 2021Q2

REPORT INFORMATION
  Report Type: Report from Study
  Country: US (occurrence: US)
  Receive Date: 20210319
  Receipt Date: 20210517
  Transmission Date: 20210717
  Serious: No
  Sender: FDA-Public Use
  Company Number: US-ACADIA PHARMACEUTICALS INC.-ACA-2021-PIM-000851

PATIENT
  Sex: Female

DRUGS (16)
  1. NUPLAZID [Suspect]
     Active Substance: PIMAVANSERIN TARTRATE
     Indication: PARKINSON^S DISEASE PSYCHOSIS
     Dosage: 34 MILLIGRAM, QD
     Route: 048
     Dates: start: 202012
  2. COLACE [Concomitant]
     Active Substance: DOCUSATE SODIUM
     Dosage: 100 MILLIGRAM
  3. PROBIOTIC [BIFIDOBACTERIUM LACTIS] [Concomitant]
     Active Substance: BIFIDOBACTERIUM ANIMALIS LACTIS
  4. NUPLAZID [Suspect]
     Active Substance: PIMAVANSERIN TARTRATE
     Indication: HALLUCINATION, VISUAL
  5. MIRALAX [Concomitant]
     Active Substance: POLYETHYLENE GLYCOL 3350
     Dosage: 17GM/SCOOP
  6. RYTARY [Concomitant]
     Active Substance: CARBIDOPA\LEVODOPA
     Dosage: 36.25?14MG
  7. VITAMIN B12 [Concomitant]
     Active Substance: CYANOCOBALAMIN
     Dosage: 100 MICROGRAM
  8. ASPIRIN [ACETYLSALICYLIC ACID] [Concomitant]
     Active Substance: ASPIRIN
     Dosage: 81 MILLIGRAM CHEWABLE
  9. MAGNESIUM [Concomitant]
     Active Substance: MAGNESIUM
     Dosage: 200 MILLIGRAM
  10. SEROQUEL [Concomitant]
     Active Substance: QUETIAPINE FUMARATE
     Dosage: 50 MILLIGRAM
  11. NUPLAZID [Suspect]
     Active Substance: PIMAVANSERIN TARTRATE
     Indication: HALLUCINATION
     Dosage: 34 MILLIGRAM, QD
     Route: 048
     Dates: end: 2021
  12. NUPLAZID [Suspect]
     Active Substance: PIMAVANSERIN TARTRATE
     Indication: DELUSION
  13. CALCIUM + VIT D [Concomitant]
     Active Substance: CALCIUM\VITAMIN D
     Dosage: 500?1000M
  14. SIMVASTATIN. [Concomitant]
     Active Substance: SIMVASTATIN
  15. MULTIVITAMINS [VITAMINS NOS] [Concomitant]
     Active Substance: VITAMINS
  16. FISH OIL [Concomitant]
     Active Substance: FISH OIL
     Dosage: 1360 MILLIGRAM

REACTIONS (3)
  - Somnolence [Unknown]
  - Hallucination [Unknown]
  - Drug ineffective [Unknown]
